FAERS Safety Report 7854775-X (Version None)
Quarter: 2011Q4

REPORT INFORMATION
  Report Type: 
  Country: None (occurrence: None)
  Receive Date: 20111026
  Receipt Date: 20111017
  Transmission Date: 20120403
  Serious: Yes (Other)
  Sender: FDA-Public Use
  Company Number: FR-BAYER-2011-084451

PATIENT
  Age: 66 Year
  Sex: Male
  Weight: 103 kg

DRUGS (9)
  1. NEBIVOLOL HCL [Concomitant]
     Dosage: 1.25 MG, BID
  2. PERMIXON [Concomitant]
     Dosage: 160 MG, BID
  3. SILODOSIN [Concomitant]
     Dosage: 8 MG, OM
  4. PROBIOTICS [Concomitant]
     Dosage: 1 DF, BID
  5. CIPROFLOXACIN [Suspect]
     Indication: RENAL ABSCESS
     Dosage: UNK
     Route: 048
     Dates: start: 20110819, end: 20110908
  6. FLECAINIDE ACETATE [Concomitant]
     Dosage: 200 MG, OM
  7. VALSARTAN [Concomitant]
     Dosage: 40 MG, OM
  8. PLAVIX [Concomitant]
     Dosage: 75 MG, QD
  9. CIPROFLOXACIN [Suspect]
     Indication: ABSCESS DRAINAGE

REACTIONS (2)
  - PAIN IN EXTREMITY [None]
  - MUSCLE INJURY [None]
